FAERS Safety Report 10576129 (Version 2)
Quarter: 2014Q4

REPORT INFORMATION
  Report Type: Spontaneous
  Country: US (occurrence: US)
  Receive Date: 20141111
  Receipt Date: 20141216
  Transmission Date: 20150529
  Serious: Yes (Other)
  Sender: FDA-Public Use
  Company Number: US-BAYER-2014-163845

PATIENT
  Age: 32 Year
  Sex: Female
  Weight: 60.32 kg

DRUGS (1)
  1. MIRENA [Suspect]
     Active Substance: LEVONORGESTREL
     Indication: CONTRACEPTION
     Dosage: 20 MCG/24HR, CONT
     Route: 015
     Dates: start: 20140813, end: 20140922

REACTIONS (2)
  - Procedural pain [Recovered/Resolved]
  - Uterine perforation [None]

NARRATIVE: CASE EVENT DATE: 20140813
